FAERS Safety Report 8826185 (Version 4)
Quarter: 2013Q2

REPORT INFORMATION
  Report Type: Spontaneous
  Country: IT (occurrence: IT)
  Receive Date: 20121005
  Receipt Date: 20130611
  Transmission Date: 20140414
  Serious: Yes (Death, Congenital Anomaly)
  Sender: FDA-Public Use
  Company Number: IT-ROCHE-1136249

PATIENT
  Age: 0 Year
  Sex: Male
  Weight: 1.2 kg

DRUGS (7)
  1. VALGANCICLOVIR [Suspect]
     Indication: CYTOMEGALOVIRUS CHORIORETINITIS
     Route: 064
     Dates: start: 20110401, end: 20120111
  2. BACTRIM [Suspect]
     Indication: PNEUMOCYSTIS JIROVECII PNEUMONIA
     Route: 064
     Dates: start: 20120110, end: 20120111
  3. REYATAZ [Concomitant]
     Route: 064
  4. NORVIR [Concomitant]
     Route: 064
  5. FOLIC ACID [Concomitant]
     Route: 064
  6. EMTRICITABINE [Concomitant]
     Route: 064
  7. TRUVADA [Concomitant]
     Route: 064

REACTIONS (6)
  - Death neonatal [Fatal]
  - Congenital anomaly [Fatal]
  - Tracheo-oesophageal fistula [Fatal]
  - Congenital oesophageal anomaly [Fatal]
  - Cerebral haemorrhage neonatal [Fatal]
  - Maternal exposure timing unspecified [Unknown]
